FAERS Safety Report 17533046 (Version 4)
Quarter: 2020Q2

REPORT INFORMATION
  Report Type: Spontaneous
  Country: US (occurrence: US)
  Receive Date: 20200312
  Receipt Date: 20200623
  Transmission Date: 20200713
  Serious: No
  Sender: FDA-Public Use
  Company Number: US-PFIZER INC-2020108633

PATIENT
  Age: 53 Year
  Sex: Female

DRUGS (2)
  1. XELJANZ XR [Suspect]
     Active Substance: TOFACITINIB CITRATE
     Indication: RHEUMATOID ARTHRITIS
     Dosage: 11 MG, DAILY
     Route: 048
     Dates: start: 2018
  2. XELJANZ XR [Suspect]
     Active Substance: TOFACITINIB CITRATE
     Dosage: 11 MG, DAILY
     Route: 048

REACTIONS (8)
  - Dry eye [Recovered/Resolved]
  - Sinusitis [Recovered/Resolved]
  - Malaise [Unknown]
  - Seasonal allergy [Unknown]
  - Eye inflammation [Recovered/Resolved]
  - Condition aggravated [Recovered/Resolved]
  - Ear infection [Unknown]
  - Arthralgia [Recovered/Resolved]
